FAERS Safety Report 6702430-1 (Version None)
Quarter: 2010Q2

REPORT INFORMATION
  Report Type: 
  Country: None (occurrence: None)
  Receive Date: 20100429
  Receipt Date: 20100421
  Transmission Date: 20101027
  Serious: Yes (Other)
  Sender: FDA-Public Use
  Company Number: A0856934A

PATIENT
  Age: 64 Year
  Sex: Female

DRUGS (1)
  1. PROMACTA [Suspect]
     Indication: ILL-DEFINED DISORDER

REACTIONS (1)
  - RASH [None]
